FAERS Safety Report 11928793 (Version 1)
Quarter: 2016Q1

REPORT INFORMATION
  Report Type: Spontaneous
  Country: NL (occurrence: NL)
  Receive Date: 20160119
  Receipt Date: 20160119
  Transmission Date: 20160526
  Serious: Yes (Hospitalization)
  Sender: FDA-Public Use
  Company Number: NL-EMD SERONO-8062931

PATIENT
  Age: 31 Year
  Sex: Female
  Weight: 62 kg

DRUGS (6)
  1. GONAL-F [Suspect]
     Active Substance: FOLLITROPIN
     Indication: IN VITRO FERTILISATION
     Dates: start: 20151023, end: 20151103
  2. OVITRELLE [Suspect]
     Active Substance: CHORIOGONADOTROPIN ALFA
     Indication: IN VITRO FERTILISATION
     Dosage: 500 MCG/ML PEN, 0.5ML
     Dates: start: 20151103, end: 20151103
  3. FEMODEEN DRAGEE [Suspect]
     Active Substance: ETHINYL ESTRADIOL\GESTODENE
     Indication: IN VITRO FERTILISATION
     Dosage: 1 TIMES EPR 1 CYCLICAL1 DF
     Dates: end: 20151008
  4. UTROGESTAN [Suspect]
     Active Substance: PROGESTERONE
     Indication: IN VITRO FERTILISATION
     Dates: start: 20151104, end: 20151130
  5. DECAPEPTYL                         /00486501/ [Suspect]
     Active Substance: GONADORELIN
     Indication: IN VITRO FERTILISATION
     Dosage: 0.1 MG/ML
     Dates: start: 20151008, end: 20151103
  6. FOLIC ACID. [Concomitant]
     Active Substance: FOLIC ACID
     Indication: PRODUCT USED FOR UNKNOWN INDICATION
     Dates: start: 20150801, end: 20151211

REACTIONS (1)
  - Cerebrovascular accident [Not Recovered/Not Resolved]

NARRATIVE: CASE EVENT DATE: 20151211
